FAERS Safety Report 8327814-X (Version None)
Quarter: 2012Q2

REPORT INFORMATION
  Report Type: 
  Country: None (occurrence: None)
  Receive Date: 20120502
  Receipt Date: 20120427
  Transmission Date: 20120825
  Serious: No
  Sender: FDA-Public Use
  Company Number: US-PFIZER INC-2012074603

PATIENT
  Sex: Female
  Weight: 65.76 kg

DRUGS (3)
  1. NEURONTIN [Suspect]
     Dosage: 300 MG, 4X/DAY
  2. PREMPRO [Suspect]
     Indication: MENOPAUSE
     Dosage: UNK
  3. PREMPRO [Suspect]
     Dosage: 4.5 MG, DAILY
     Dates: end: 20120315

REACTIONS (2)
  - THERAPEUTIC RESPONSE UNEXPECTED [None]
  - HOT FLUSH [None]
